FAERS Safety Report 10157166 (Version 1)
Quarter: 2014Q2

REPORT INFORMATION
  Report Type: Spontaneous
  Country: US (occurrence: None)
  Receive Date: 20140506
  Receipt Date: 20140506
  Transmission Date: 20141212
  Serious: Yes (Other)
  Sender: FDA-Public Use
  Company Number: None

PATIENT
  Age: 72 Year
  Sex: Male

DRUGS (1)
  1. TEMOZOLOMIDE (UNKNOWN) [Suspect]
     Indication: MALIGNANT MELANOMA
     Dates: start: 20131224, end: 20140320

REACTIONS (1)
  - No therapeutic response [None]
